FAERS Safety Report 23215474 (Version 1)
Quarter: 2023Q4

REPORT INFORMATION
  Report Type: Spontaneous
  Country: US (occurrence: US)
  Receive Date: 20231122
  Receipt Date: 20231122
  Transmission Date: 20240109
  Serious: No
  Sender: FDA-Public Use
  Company Number: US-SA-SAC20231114000335

PATIENT
  Sex: Female

DRUGS (10)
  1. DUPIXENT [Suspect]
     Active Substance: DUPILUMAB
     Indication: Dermatitis atopic
     Dosage: 300 MG, QOW
     Route: 058
     Dates: start: 2021
  2. ALLERGY [CHLORPHENAMINE MALEATE] [Concomitant]
  3. ANASTROZOLE [Concomitant]
     Active Substance: ANASTROZOLE
  4. DICLOFENAC SODIUM [Concomitant]
     Active Substance: DICLOFENAC\DICLOFENAC SODIUM
  5. KEPPRA [Concomitant]
     Active Substance: LEVETIRACETAM
  6. OPZELURA [Concomitant]
     Active Substance: RUXOLITINIB PHOSPHATE
  7. PEPCID [Concomitant]
     Active Substance: FAMOTIDINE
  8. TYLENOL [Concomitant]
     Active Substance: ACETAMINOPHEN
  9. TRIAMCINOLONE [Concomitant]
     Active Substance: TRIAMCINOLONE
  10. DESOXIMETASONE [Concomitant]
     Active Substance: DESOXIMETASONE

REACTIONS (9)
  - Skin infection [Unknown]
  - Rash [Unknown]
  - Skin haemorrhage [Not Recovered/Not Resolved]
  - Hot flush [Unknown]
  - Abdominal pain [Unknown]
  - Pruritus [Unknown]
  - Inappropriate schedule of product administration [Unknown]
  - Drug ineffective [Unknown]
  - Injection site pain [Unknown]
